FAERS Safety Report 6518005-3 (Version None)
Quarter: 2009Q4

REPORT INFORMATION
  Report Type: 
  Country: None (occurrence: None)
  Receive Date: 20091224
  Receipt Date: 20091221
  Transmission Date: 20100525
  Serious: Yes (Life-Threatening, Hospitalization)
  Sender: FDA-Public Use
  Company Number: US-GILEAD-2009-0025983

PATIENT
  Sex: Female

DRUGS (12)
  1. LETAIRIS [Suspect]
     Indication: PULMONARY ARTERIAL HYPERTENSION
     Route: 048
  2. CARDIZEM [Concomitant]
  3. METOPROLOL TARTRATE [Concomitant]
  4. ENALAPRIL MALEATE [Concomitant]
  5. DIGOXIN [Concomitant]
  6. AMLODIPINE [Concomitant]
  7. HYDROCHLOROTHIAZIDE [Concomitant]
  8. WARFARIN [Concomitant]
  9. THEOPHYLLINE [Concomitant]
  10. LUMIGAN [Concomitant]
  11. FISH OIL [Concomitant]
  12. MULTI-VITAMINS [Concomitant]

REACTIONS (3)
  - ACUTE RESPIRATORY FAILURE [None]
  - ASTHENIA [None]
  - PICKWICKIAN SYNDROME [None]
